FAERS Safety Report 6379530-1 (Version None)
Quarter: 2009Q3

REPORT INFORMATION
  Report Type: 
  Country: None (occurrence: None)
  Receive Date: 20090928
  Receipt Date: 20090917
  Transmission Date: 20100115
  Serious: Yes (Hospitalization)
  Sender: FDA-Public Use
  Company Number: US-GENENTECH-290948

PATIENT
  Age: 18 Year
  Sex: Female

DRUGS (4)
  1. ACTIVASE [Suspect]
     Indication: VENOUS THROMBOSIS
     Dosage: UNK
  2. HEPARIN [Suspect]
     Indication: VENOUS THROMBOSIS
     Dosage: UNK
  3. ENOXAPARIN [Suspect]
     Indication: VENOUS THROMBOSIS
     Dosage: UNK
  4. LEPIRUDIN [Suspect]
     Indication: VENOUS THROMBOSIS
     Dosage: UNK

REACTIONS (2)
  - SPLENIC INFARCTION [None]
  - SPLENIC RUPTURE [None]
